FAERS Safety Report 5849833-5 (Version None)
Quarter: 2008Q3

REPORT INFORMATION
  Report Type: 
  Country: None (occurrence: None)
  Receive Date: 20080815
  Receipt Date: 20080805
  Transmission Date: 20090109
  Serious: Yes (Hospitalization)
  Sender: FDA-Public Use
  Company Number: 2008-178801-NL

PATIENT
  Age: 31 Year
  Sex: Female

DRUGS (14)
  1. ROCURONIUM BROMIDE [Suspect]
     Indication: ANAESTHESIA PROCEDURE
     Dosage: INTRAVENOUS (NOS)
     Route: 042
     Dates: start: 20080513, end: 20080513
  2. VECURONIUM BROMIDE [Suspect]
     Indication: ANAESTHESIA PROCEDURE
     Dosage: 20 MG ONCE INTRAVENOUS (NOS)
     Route: 042
     Dates: start: 20080513, end: 20080513
  3. PROPOFOL [Suspect]
     Indication: ANAESTHESIA PROCEDURE
     Dosage: INTRAVENOUS (NOS)
     Route: 042
     Dates: start: 20080513, end: 20080513
  4. DROPERIDOL [Concomitant]
  5. EPHEDRINE HYDROCHLORIDE [Concomitant]
  6. CALCIUM GLUCONATE [Concomitant]
  7. HEPARIN SODIUM [Concomitant]
  8. ATROPINE SULFATE [Concomitant]
  9. FLURBIPROFEN AXETIL [Concomitant]
  10. NEOSTIGMINE METILSULFATE [Concomitant]
  11. ROPIVACAINE [Concomitant]
  12. REMIFENTANIL HYDROCHLORIDE [Concomitant]
  13. LIDOCAINE HYDROCHLORIDE [Concomitant]
  14. FENTANYL-25 [Concomitant]

REACTIONS (1)
  - RHABDOMYOLYSIS [None]
